FAERS Safety Report 5482326-6 (Version None)
Quarter: 2007Q4

REPORT INFORMATION
  Report Type: 
  Country: None (occurrence: None)
  Receive Date: 20071011
  Receipt Date: 20071008
  Transmission Date: 20080405
  Serious: Yes (Other)
  Sender: FDA-Public Use
  Company Number: GB-AVENTIS-200719256GDDC

PATIENT

DRUGS (9)
  1. GLYBURIDE [Suspect]
     Indication: TYPE 2 DIABETES MELLITUS
  2. METFORMIN HCL [Suspect]
     Indication: TYPE 2 DIABETES MELLITUS
  3. GLICLAZIDE [Suspect]
     Indication: TYPE 2 DIABETES MELLITUS
  4. GLIPIZIDE [Suspect]
     Indication: TYPE 2 DIABETES MELLITUS
  5. GLIMEPIRIDE [Suspect]
     Indication: TYPE 2 DIABETES MELLITUS
  6. GLIQUIDONE [Suspect]
     Indication: TYPE 2 DIABETES MELLITUS
  7. GLYCYCLAMIDE [Suspect]
     Indication: TYPE 2 DIABETES MELLITUS
  8. CHLORPROPAMIDE [Suspect]
     Indication: TYPE 2 DIABETES MELLITUS
  9. GLIBOMET [Suspect]
     Indication: TYPE 2 DIABETES MELLITUS

REACTIONS (1)
  - LUNG NEOPLASM MALIGNANT [None]
